FAERS Safety Report 21787127 (Version 3)
Quarter: 2023Q1

REPORT INFORMATION
  Report Type: Report from Study
  Country: ES (occurrence: ES)
  Receive Date: 20221228
  Receipt Date: 20230321
  Transmission Date: 20230418
  Serious: Yes (Other)
  Sender: FDA-Public Use
  Company Number: ES-ViiV Healthcare Limited-PA2022GSK183682

PATIENT
  Age: 15 Year

DRUGS (7)
  1. EFAVIRENZ [Suspect]
     Active Substance: EFAVIRENZ
     Indication: Perinatal HIV infection
     Dosage: UNK
     Route: 065
  2. LOPINAVIR AND RITONAVIR [Suspect]
     Active Substance: LOPINAVIR\RITONAVIR
     Indication: Perinatal HIV infection
     Dosage: UNK
     Route: 065
  3. LAMIVUDINE [Suspect]
     Active Substance: LAMIVUDINE
     Indication: Perinatal HIV infection
     Dosage: UNK
     Route: 065
  4. DIDANOSINE [Suspect]
     Active Substance: DIDANOSINE
     Indication: Perinatal HIV infection
     Dosage: UNK
     Route: 065
  5. RALTEGRAVIR [Suspect]
     Active Substance: RALTEGRAVIR
     Indication: Perinatal HIV infection
     Dosage: UNK
     Route: 048
  6. STAVUDINE [Suspect]
     Active Substance: STAVUDINE
     Indication: Perinatal HIV infection
     Dosage: UNK
     Route: 065
  7. ZIDOVUDINE [Suspect]
     Active Substance: ZIDOVUDINE
     Indication: Perinatal HIV infection
     Dosage: UNK
     Route: 065

REACTIONS (5)
  - Pathogen resistance [Unknown]
  - HIV viraemia [Unknown]
  - Virologic failure [Unknown]
  - Viral mutation identified [Unknown]
  - Treatment failure [Unknown]
